FAERS Safety Report 12391574 (Version 4)
Quarter: 2017Q3

REPORT INFORMATION
  Report Type: Spontaneous
  Country: US (occurrence: US)
  Receive Date: 20160521
  Receipt Date: 20170811
  Transmission Date: 20171127
  Serious: Yes (Hospitalization, Other)
  Sender: FDA-Public Use
  Company Number: US-AUROBINDO-AUR-APL-2016-06300

PATIENT
  Age: 66 Year
  Sex: Male

DRUGS (2)
  1. BUPIVACAINE HYDROCHLORIDE 0.5% (5 MG/ML) [Suspect]
     Active Substance: BUPIVACAINE HYDROCHLORIDE
     Indication: PAIN MANAGEMENT
     Dosage: 10 ML OF 0.5 % INTRAOPERATIVELY
     Route: 065
  2. BUPIVACAINE HYDROCHLORIDE 0.5% (5 MG/ML) [Suspect]
     Active Substance: BUPIVACAINE HYDROCHLORIDE
     Indication: SEDATION

REACTIONS (8)
  - Pyrexia [Recovered/Resolved]
  - Pruritus [Recovered/Resolved]
  - Liver function test increased [Recovered/Resolved]
  - Drug-induced liver injury [Recovered/Resolved]
  - Jaundice cholestatic [Recovered/Resolved]
  - Ocular icterus [Recovered/Resolved]
  - Fatigue [Recovered/Resolved]
  - Chromaturia [Recovered/Resolved]
